FAERS Safety Report 7295085-1 (Version None)
Quarter: 2011Q1

REPORT INFORMATION
  Report Type: 
  Country: None (occurrence: None)
  Receive Date: 20110211
  Receipt Date: 20110211
  Transmission Date: 20110831
  Serious: Yes (Hospitalization, Other)
  Sender: FDA-Public Use
  Company Number: None

PATIENT
  Age: 4 Year
  Sex: Male
  Weight: 13.6079 kg

DRUGS (1)
  1. ZYRTEC [Suspect]
     Indication: SEASONAL ALLERGY
     Dosage: 1/2 TSP. (2.5ML) 1X/DAY AND 2X/DAY IF NEEDED
     Dates: start: 20100421, end: 20100511

REACTIONS (14)
  - IRRITABILITY [None]
  - FAECES DISCOLOURED [None]
  - INCREASED UPPER AIRWAY SECRETION [None]
  - LETHARGY [None]
  - DYSPHONIA [None]
  - RASH [None]
  - HAEMATOCHEZIA [None]
  - MUCOUS STOOLS [None]
  - COUGH [None]
  - VOMITING [None]
  - PETIT MAL EPILEPSY [None]
  - ACUTE SINUSITIS [None]
  - EYE INFLAMMATION [None]
  - AGGRESSION [None]
